FAERS Safety Report 13094329 (Version 1)
Quarter: 2017Q1

REPORT INFORMATION
  Report Type: Spontaneous
  Country: US (occurrence: US)
  Receive Date: 20170106
  Receipt Date: 20170106
  Transmission Date: 20170428
  Serious: No
  Sender: FDA-Public Use
  Company Number: US-PFIZER INC-2017004536

PATIENT
  Age: 53 Year
  Sex: Male
  Weight: 88.45 kg

DRUGS (2)
  1. VIAGRA [Suspect]
     Active Substance: SILDENAFIL CITRATE
     Dosage: 50 MG, UNK (CUTS IN HALF TO MAKE 50 MG)
     Dates: start: 2014
  2. VIAGRA [Suspect]
     Active Substance: SILDENAFIL CITRATE
     Dosage: CUT IN HALF AND THEN TOOK ANOTHER HALF

REACTIONS (5)
  - Blood pressure decreased [Unknown]
  - Drug ineffective [Unknown]
  - Erythema [Unknown]
  - Burning sensation [Unknown]
  - Back pain [Unknown]
